FAERS Safety Report 6639678-0 (Version None)
Quarter: 2010Q1

REPORT INFORMATION
  Report Type: 
  Country: None (occurrence: None)
  Receive Date: 20100318
  Receipt Date: 20100312
  Transmission Date: 20100710
  Serious: Yes (Hospitalization)
  Sender: FDA-Public Use
  Company Number: AU-ROXANE LABORATORIES, INC.-2010-DE-01640GD

PATIENT
  Sex: Male

DRUGS (2)
  1. MORPHINE SULFATE [Suspect]
     Indication: MUSCULOSKELETAL PAIN
     Dosage: 40 MG
     Route: 048
  2. METHADONE HCL [Suspect]
     Indication: MUSCULOSKELETAL PAIN
     Dosage: 8 MG
     Route: 048

REACTIONS (5)
  - CONSTIPATION [None]
  - DRUG WITHDRAWAL SYNDROME [None]
  - NAUSEA [None]
  - PRURITUS [None]
  - SOMNOLENCE [None]
